FAERS Safety Report 4397902-1 (Version None)
Quarter: 2004Q3

REPORT INFORMATION
  Report Type: 
  Country: None (occurrence: None)
  Receive Date: 20040713
  Receipt Date: 20040628
  Transmission Date: 20050211
  Serious: Yes (Other)
  Sender: FDA-Public Use
  Company Number: DSA_60428_2004

PATIENT
  Age: 8 Month
  Sex: Female
  Weight: 6.804 kg

DRUGS (3)
  1. DIASTAT [Suspect]
     Indication: CONVULSION
  2. KLONOPIN [Concomitant]
  3. LAMICTAL [Concomitant]

REACTIONS (1)
  - RESPIRATORY DEPRESSION [None]
